FAERS Safety Report 10034353 (Version 1)
Quarter: 2014Q1

REPORT INFORMATION
  Report Type: Spontaneous
  Country: US (occurrence: None)
  Receive Date: 20140324
  Receipt Date: 20140324
  Transmission Date: 20141002
  Serious: Yes (Hospitalization)
  Sender: FDA-Public Use
  Company Number: None

PATIENT
  Age: 68 Year
  Sex: Male

DRUGS (6)
  1. PRADAXA [Suspect]
     Indication: ATRIAL FLUTTER
     Dosage: APPR.  4 DAYS
     Route: 048
  2. LOSARTAN/HCTZ [Concomitant]
  3. NORVASC [Concomitant]
  4. SPIRIVA [Concomitant]
  5. FLECAINIDE [Concomitant]
  6. PRADAXA [Concomitant]

REACTIONS (6)
  - Dyspnoea [None]
  - Wheezing [None]
  - Ecchymosis [None]
  - Vertigo [None]
  - Nausea [None]
  - Altered visual depth perception [None]
